FAERS Safety Report 8179408-7 (Version None)
Quarter: 2012Q1

REPORT INFORMATION
  Report Type: 
  Country: None (occurrence: None)
  Receive Date: 20120302
  Receipt Date: 20120227
  Transmission Date: 20120608
  Serious: Yes (Death)
  Sender: FDA-Public Use
  Company Number: CHPA2012US003751

PATIENT
  Age: 28 Year
  Sex: Male

DRUGS (4)
  1. GABAPENTIN [Suspect]
     Route: 048
  2. ETHANOL [Suspect]
     Route: 048
  3. DIPHENHYDRAMINE HCL [Suspect]
     Route: 048
  4. BUPROPION HCL [Suspect]
     Route: 048

REACTIONS (1)
  - COMPLETED SUICIDE [None]
